FAERS Safety Report 12338359 (Version 1)
Quarter: 2016Q2

REPORT INFORMATION
  Report Type: Spontaneous
  Country: JP (occurrence: JP)
  Receive Date: 20160505
  Receipt Date: 20160505
  Transmission Date: 20160815
  Serious: Yes (Other)
  Sender: FDA-Public Use
  Company Number: JP-WATSON-2016-09073

PATIENT
  Age: 68 Year
  Sex: Female

DRUGS (1)
  1. SILDENAFIL (UNKNOWN) [Suspect]
     Active Substance: SILDENAFIL
     Indication: PULMONARY VENO-OCCLUSIVE DISEASE
     Dosage: 20 MG, DAILY
     Route: 065

REACTIONS (1)
  - Acute pulmonary oedema [Unknown]
